FAERS Safety Report 9269317 (Version 3)
Quarter: 2013Q2

REPORT INFORMATION
  Report Type: Spontaneous
  Country: US (occurrence: US)
  Receive Date: 20130503
  Receipt Date: 20130606
  Transmission Date: 20140414
  Serious: No
  Sender: FDA-Public Use
  Company Number: US-PFIZER INC-2013136970

PATIENT
  Age: 11 Year
  Sex: Male
  Weight: 29.48 kg

DRUGS (3)
  1. QUILLIVANT XR [Suspect]
     Indication: ATTENTION DEFICIT/HYPERACTIVITY DISORDER
     Dosage: 6 ML, DAILY
     Dates: start: 201303
  2. CLARITIN [Concomitant]
     Indication: SEASONAL ALLERGY
     Dosage: 10 MG, DAILY
  3. SINGULAIR [Concomitant]
     Indication: SEASONAL ALLERGY
     Dosage: UNK, DAILY

REACTIONS (4)
  - Drug dispensing error [Unknown]
  - Product packaging issue [Unknown]
  - Poor quality drug administered [Unknown]
  - Dysphagia [Unknown]
